FAERS Safety Report 13807627 (Version 1)
Quarter: 2017Q3

REPORT INFORMATION
  Report Type: Spontaneous
  Country: US (occurrence: US)
  Receive Date: 20170728
  Receipt Date: 20170728
  Transmission Date: 20171127
  Serious: Yes (Hospitalization, Other)
  Sender: FDA-Public Use
  Company Number: US-TEVA-792051USA

PATIENT
  Age: 28 Year
  Sex: Female

DRUGS (1)
  1. LOPERAMIDE [Suspect]
     Active Substance: LOPERAMIDE
     Route: 065

REACTIONS (11)
  - Overdose [Unknown]
  - Unresponsive to stimuli [Unknown]
  - Long QT syndrome [Recovered/Resolved]
  - Hyperkalaemia [Recovered/Resolved]
  - Respiratory depression [Unknown]
  - Bradycardia [Unknown]
  - Miosis [Unknown]
  - Acute kidney injury [Unknown]
  - Rhabdomyolysis [Unknown]
  - Ventricular tachycardia [Unknown]
  - Drug abuse [Unknown]
